FAERS Safety Report 4888333-6 (Version None)
Quarter: 2006Q1

REPORT INFORMATION
  Report Type: 
  Country: None (occurrence: None)
  Receive Date: 20060123
  Receipt Date: 20060117
  Transmission Date: 20060701
  Serious: Yes (Life-Threatening)
  Sender: FDA-Public Use
  Company Number: JP-JPN-A200600232

PATIENT
  Age: 53 Year
  Sex: Female

DRUGS (8)
  1. PAXIL [Suspect]
  2. RISPERDAL [Suspect]
     Route: 048
  3. PROMETHAZINE HCL [Suspect]
     Route: 065
  4. SILECE [Suspect]
     Route: 065
  5. SEPAZON [Suspect]
     Route: 048
  6. AKINETON [Suspect]
     Route: 065
  7. GASMOTIN [Suspect]
     Route: 048
  8. MEILAX [Suspect]
     Route: 048

REACTIONS (2)
  - DIABETIC COMA [None]
  - KETOACIDOSIS [None]
